FAERS Safety Report 10595802 (Version 2)
Quarter: 2015Q2

REPORT INFORMATION
  Report Type: Spontaneous
  Country: IT (occurrence: IT)
  Receive Date: 20141120
  Receipt Date: 20150409
  Transmission Date: 20150821
  Serious: Yes (Hospitalization)
  Sender: FDA-Public Use
  Company Number: IT-NOVOPROD-428955

PATIENT
  Age: 80 Year
  Sex: Female

DRUGS (11)
  1. NOVORAPID [Suspect]
     Active Substance: INSULIN ASPART
     Indication: DIABETES MELLITUS
     Dosage: UNK
     Route: 065
     Dates: start: 20140101
  2. DOXAZOSIN [Concomitant]
     Active Substance: DOXAZOSIN\DOXAZOSIN MESYLATE
  3. MOVICOL [Concomitant]
     Active Substance: POLYETHYLENE GLYCOL 3350\POTASSIUM CHLORIDE\SODIUM BICARBONATE\SODIUM CHLORIDE
  4. CALCIJEX [Concomitant]
     Active Substance: CALCITRIOL
     Dosage: 0.25 ?G
     Route: 048
  5. CALCIUM CARBONATE. [Concomitant]
     Active Substance: CALCIUM CARBONATE
  6. DIBASE [Concomitant]
     Active Substance: CHOLECALCIFEROL
  7. AMLODIPINE [Concomitant]
     Active Substance: AMLODIPINE BESYLATE
  8. POTASSION [Concomitant]
  9. SIMVASTATINA [Concomitant]
     Active Substance: SIMVASTATIN
  10. PANTOPRAZOLO [Concomitant]
     Dosage: 40 MG
     Route: 048
  11. ANASTROZOLO [Concomitant]

REACTIONS (2)
  - Myocardial necrosis marker increased [Recovering/Resolving]
  - Hypoglycaemia [Recovering/Resolving]

NARRATIVE: CASE EVENT DATE: 20140710
